FAERS Safety Report 5787430-0 (Version None)
Quarter: 2008Q2

REPORT INFORMATION
  Report Type: 
  Country: None (occurrence: None)
  Receive Date: 20080625
  Receipt Date: 20080616
  Transmission Date: 20081010
  Serious: Yes (Other)
  Sender: FDA-Public Use
  Company Number: JP-ASTRAZENECA-2008AC01212

PATIENT
  Age: 61 Year
  Sex: Female

DRUGS (4)
  1. DIPRIVAN [Suspect]
     Indication: ANAESTHESIA
     Dosage: 1%
     Route: 042
  2. CARBOCAIN [Suspect]
     Indication: ANAESTHESIA
     Dosage: 1.5%
     Route: 008
  3. SEVOFLURANE [Suspect]
     Indication: ANAESTHESIA
     Dosage: 3%
     Route: 055
  4. VECURONIUM BROMIDE [Suspect]
     Indication: ANAESTHESIA
     Route: 042

REACTIONS (1)
  - HOLMES-ADIE PUPIL [None]
